FAERS Safety Report 19844516 (Version 1)
Quarter: 2021Q3

REPORT INFORMATION
  Report Type: Spontaneous
  Country: US (occurrence: US)
  Receive Date: 20210916
  Receipt Date: 20210916
  Transmission Date: 20211014
  Serious: No
  Sender: FDA-Public Use
  Company Number: US-JACOBUS PHARMACEUTICAL COMPANY, INC.-2118451

PATIENT
  Age: 60 Year
  Sex: Male

DRUGS (15)
  1. RUZURGI [Suspect]
     Active Substance: AMIFAMPRIDINE
     Indication: MYASTHENIC SYNDROME
     Route: 048
     Dates: start: 20191216
  2. ALENDRONATE SODIUM. [Concomitant]
     Active Substance: ALENDRONATE SODIUM
  3. MESTINON [Concomitant]
     Active Substance: PYRIDOSTIGMINE BROMIDE
  4. CYTOXAN [Concomitant]
     Active Substance: CYCLOPHOSPHAMIDE
  5. ALBUTEROL. [Concomitant]
     Active Substance: ALBUTEROL
  6. HYDROXYZINE [Concomitant]
     Active Substance: HYDROXYZINE HYDROCHLORIDE
  7. GABAPENTIN. [Concomitant]
     Active Substance: GABAPENTIN
  8. TOPIRAMATE. [Concomitant]
     Active Substance: TOPIRAMATE
  9. VALPROIC ACID. [Concomitant]
     Active Substance: VALPROIC ACID
  10. ASPIRIN. [Concomitant]
     Active Substance: ASPIRIN
  11. KEPPRA [Concomitant]
     Active Substance: LEVETIRACETAM
  12. LIDOCAINE AND PRILOCAINE [Concomitant]
     Active Substance: LIDOCAINE\PRILOCAINE
  13. VITAMIN B2 [Concomitant]
     Active Substance: RIBOFLAVIN
  14. PERCOCET [Concomitant]
     Active Substance: ACETAMINOPHEN\OXYCODONE HYDROCHLORIDE
  15. AMBIEN [Concomitant]
     Active Substance: ZOLPIDEM TARTRATE

REACTIONS (3)
  - Dyspnoea [Unknown]
  - Back pain [Unknown]
  - Fracture [Unknown]
